FAERS Safety Report 18334793 (Version 3)
Quarter: 2020Q4

REPORT INFORMATION
  Report Type: Report from Study
  Country: JP (occurrence: JP)
  Receive Date: 20201001
  Receipt Date: 20201222
  Transmission Date: 20210113
  Serious: Yes (Hospitalization, Disabling, Other)
  Sender: FDA-Public Use
  Company Number: JP-PFIZER INC-2020372110

PATIENT
  Age: 67 Year
  Sex: Male
  Weight: 63.2 kg

DRUGS (12)
  1. METHOTREXATE SODIUM. [Concomitant]
     Active Substance: METHOTREXATE SODIUM
     Indication: RHEUMATOID ARTHRITIS
     Dosage: 10 MG, WEEKLY
     Dates: end: 20141002
  2. AZULFIDINE [Concomitant]
     Active Substance: SULFASALAZINE
     Dosage: UNK
     Dates: end: 20141002
  3. XELJANZ [Suspect]
     Active Substance: TOFACITINIB CITRATE
     Indication: RHEUMATOID ARTHRITIS
     Dosage: 5 MG, 2X/DAY
     Route: 048
     Dates: start: 20141002, end: 20160525
  4. BONOTEO [Concomitant]
     Active Substance: MINODRONIC ACID
     Route: 048
  5. SG [APRONAL;CAFFEINE;PARACETAMOL;PROPYPHENAZONE] [Concomitant]
     Route: 048
  6. AZULFIDINE [Concomitant]
     Active Substance: SULFASALAZINE
     Dosage: UNK
  7. URSO [Concomitant]
     Active Substance: URSODIOL
     Route: 048
  8. OPALMON [Concomitant]
     Active Substance: LIMAPROST
     Route: 048
  9. MYSLEE [Concomitant]
     Active Substance: ZOLPIDEM TARTRATE
     Route: 048
  10. DEPAS [ETIZOLAM] [Concomitant]
     Active Substance: ETIZOLAM
     Route: 048
  11. MAGNESIUM OXIDE. [Concomitant]
     Active Substance: MAGNESIUM OXIDE
     Route: 048
  12. METHOTREXATE SODIUM. [Concomitant]
     Active Substance: METHOTREXATE SODIUM
     Dosage: 4 MG, WEEKLY
     Dates: start: 20150121, end: 20160525

REACTIONS (2)
  - Monoplegia [Not Recovered/Not Resolved]
  - Herpes zoster infection neurological [Not Recovered/Not Resolved]

NARRATIVE: CASE EVENT DATE: 20160517
